FAERS Safety Report 12900421 (Version 1)
Quarter: 2016Q4

REPORT INFORMATION
  Report Type: Spontaneous
  Country: US (occurrence: US)
  Receive Date: 20161031
  Receipt Date: 20161031
  Transmission Date: 20170207
  Serious: Yes (Hospitalization)
  Sender: FDA-Public Use
  Company Number: None

PATIENT
  Age: 36 Year
  Sex: Female

DRUGS (5)
  1. JADENU [Suspect]
     Active Substance: DEFERASIROX
     Indication: HAEMOCHROMATOSIS
     Dosage: 3 TABLETS QAM PO
     Route: 048
     Dates: start: 20160722
  2. JADENU [Suspect]
     Active Substance: DEFERASIROX
  3. HYDREA [Concomitant]
     Active Substance: HYDROXYUREA
  4. ENOXAPARIN [Concomitant]
     Active Substance: ENOXAPARIN
  5. ULTRAM [Concomitant]
     Active Substance: TRAMADOL HYDROCHLORIDE

REACTIONS (2)
  - Hospitalisation [None]
  - Drug dose omission [None]

NARRATIVE: CASE EVENT DATE: 20161022
